FAERS Safety Report 6629284 (Version 3)
Quarter: 2022Q3

REPORT INFORMATION
  Report Type: Report from Study
  Country: DE (occurrence: DE)
  Receive Date: 20080222
  Receipt Date: 20220913
  Transmission Date: 20221026
  Serious: Yes (Death, Life-Threatening, Hospitalization, Other)
  Sender: FDA-Public Use
  Company Number: None

PATIENT
  Age: 62 Year
  Sex: Male

DRUGS (78)
  1. FORMOTEROL FUMARATE [Suspect]
     Active Substance: FORMOTEROL FUMARATE
     Indication: Chronic obstructive pulmonary disease
     Dosage: 1 DOSAGE FORM, BID
     Dates: start: 20050629, end: 20220718
  2. FORMOTEROL FUMARATE [Suspect]
     Active Substance: FORMOTEROL FUMARATE
     Dosage: 2 DOSAGE FORM, QD
     Route: 065
  3. PANTOZOL [Suspect]
     Active Substance: PANTOPRAZOLE SODIUM
     Indication: Prophylaxis
     Dosage: 40 MG, QD
     Route: 048
     Dates: start: 20050629, end: 20050630
  4. PANTOZOL [Suspect]
     Active Substance: PANTOPRAZOLE SODIUM
     Dosage: 40 MG, QD
     Route: 048
     Dates: start: 20050704, end: 20050718
  5. PANTOZOL [Suspect]
     Active Substance: PANTOPRAZOLE SODIUM
     Dosage: 40 MG, QD, (DAILY DOSE: 40 MG MILLIGRAM(S) EVERY DAY)
     Route: 065
     Dates: start: 20050703, end: 20050718
  6. HEPARIN SODIUM [Suspect]
     Active Substance: HEPARIN SODIUM
     Indication: Product used for unknown indication
     Dosage: 25000 IU, QD,DOSAGE REGIMEN: 1-0-Z
     Route: 065
     Dates: start: 20050627, end: 20050709
  7. PHENPROCOUMON [Suspect]
     Active Substance: PHENPROCOUMON
     Indication: Atrial fibrillation
     Dosage: UNK
     Route: 065
     Dates: start: 20050710
  8. OMEPRAZOLE [Suspect]
     Active Substance: OMEPRAZOLE
     Indication: Prophylaxis against gastrointestinal ulcer
     Dosage: 20 MG, QD
     Route: 048
     Dates: start: 20050719
  9. OMEPRAZOLE [Suspect]
     Active Substance: OMEPRAZOLE
     Indication: Prophylaxis
     Dosage: 20 MG, QD, (DRUG NAME: GASTRACID. DOSAGE REGIMEN: 0-0-1.)
     Route: 048
     Dates: start: 20050718
  10. HEPARIN [Suspect]
     Active Substance: HEPARIN SODIUM
     Indication: Thrombosis prophylaxis
     Dosage: 25000 IU, QD
     Route: 065
     Dates: start: 20050627, end: 20050709
  11. BRICANYL [Suspect]
     Active Substance: TERBUTALINE SULFATE
     Indication: Dyspnoea
     Dosage: 0.5 DF, BID
     Route: 065
     Dates: start: 20050627, end: 20050709
  12. BRICANYL [Suspect]
     Active Substance: TERBUTALINE SULFATE
     Indication: Dyspnoea
     Dosage: 2 DOSAGE FORM, QD,DOSAGE REGIMEN: 1/2-0-1/2
     Route: 065
     Dates: start: 20050627, end: 20050709
  13. ACETYLCYSTEINE [Suspect]
     Active Substance: ACETYLCYSTEINE
     Indication: Productive cough
     Dosage: 300 MG, BID
     Route: 048
     Dates: start: 20050629, end: 20050712
  14. BECLOMETHASONE DIPROPIONATE [Suspect]
     Active Substance: BECLOMETHASONE DIPROPIONATE
     Indication: Chronic obstructive pulmonary disease
     Dosage: 1 DOSAGE FORM, BID, (DAILY DOSE: 2 DF DOSAGE FORM EVERY DAY)
     Dates: start: 20050627, end: 20050715
  15. BECLOMETHASONE DIPROPIONATE [Suspect]
     Active Substance: BECLOMETHASONE DIPROPIONATE
     Dosage: 2 DOSAGE FORM, BID
     Route: 065
  16. THEOPHYLLINE [Suspect]
     Active Substance: THEOPHYLLINE
     Indication: Chronic obstructive pulmonary disease
     Dosage: 600 MG, QD
     Route: 065
     Dates: start: 20050630, end: 20050630
  17. THEOPHYLLINE [Suspect]
     Active Substance: THEOPHYLLINE
     Dosage: 200 MG, QD
     Route: 065
     Dates: start: 20050718, end: 20050718
  18. THEOPHYLLINE [Suspect]
     Active Substance: THEOPHYLLINE
     Dosage: 200 MG, QD
     Route: 065
     Dates: start: 20050721, end: 20050721
  19. THEOPHYLLINE [Suspect]
     Active Substance: THEOPHYLLINE
     Dosage: 600 MG, QD
     Route: 048
     Dates: start: 20050704, end: 20050709
  20. BEROTEC [Suspect]
     Active Substance: FENOTEROL HYDROBROMIDE
     Indication: Chronic obstructive pulmonary disease
     Dosage: UNK, 2 TO 3 TIMES/WEEK
     Dates: start: 20050601
  21. BEROTEC [Suspect]
     Active Substance: FENOTEROL HYDROBROMIDE
     Dosage: 6 DOSAGE FORM, QW, (DOSAGE REGIMEN: 2-3X/WO)
     Route: 065
     Dates: start: 20040601
  22. BEROTEC [Suspect]
     Active Substance: FENOTEROL HYDROBROMIDE
     Dosage: UNK, TIW
     Route: 065
  23. SPIRIVA [Suspect]
     Active Substance: TIOTROPIUM BROMIDE MONOHYDRATE
     Indication: Chronic obstructive pulmonary disease
     Dosage: 1 DF, QD
     Dates: start: 20050601
  24. SPIRIVA [Suspect]
     Active Substance: TIOTROPIUM BROMIDE MONOHYDRATE
     Dosage: 1 DOSAGE FORM, QD, (DOSAGE REGIMEN 1-0-0)
     Dates: start: 20040601
  25. PREDNISOLONE [Suspect]
     Active Substance: PREDNISOLONE
     Indication: Chronic obstructive pulmonary disease
     Dosage: UNK
     Route: 048
     Dates: start: 20050628, end: 20050705
  26. PREDNISOLONE [Suspect]
     Active Substance: PREDNISOLONE
     Dosage: UNK
     Route: 048
     Dates: start: 20050707, end: 20050715
  27. PREDNISOLONE [Suspect]
     Active Substance: PREDNISOLONE
     Dosage: UNK
     Route: 048
     Dates: start: 20050719
  28. PREDNISOLONE [Suspect]
     Active Substance: PREDNISOLONE
     Dosage: 50 MG, QD
     Route: 048
  29. AMBROXOL [Suspect]
     Active Substance: AMBROXOL
     Indication: Productive cough
     Dosage: 14 DF, BID
     Route: 048
     Dates: start: 20050701, end: 20050718
  30. AMBROXOL [Suspect]
     Active Substance: AMBROXOL
     Indication: Unevaluable event
     Dosage: 28 DOSAGE FORM, QD, DAILY DOSE: 28 GTT DROP(S) EVERY DAY
     Route: 048
     Dates: start: 20050701, end: 20050718
  31. HYDROCHLOROTHIAZIDE\RAMIPRIL [Suspect]
     Active Substance: HYDROCHLOROTHIAZIDE\RAMIPRIL
     Indication: Coronary artery disease
     Dosage: 1 DOSAGE FORM, QD, DAILY DOSE: 1 DF DOSAGE FORM EVERY DAY
     Route: 048
     Dates: start: 20050703
  32. HYDROCHLOROTHIAZIDE\RAMIPRIL [Suspect]
     Active Substance: HYDROCHLOROTHIAZIDE\RAMIPRIL
     Indication: Cardiovascular disorder
  33. NORVASC [Suspect]
     Active Substance: AMLODIPINE BESYLATE
     Indication: Coronary artery disease
     Dosage: 5 MG, QD, DOSAGE REGIMEN: 1-0-0
     Route: 048
     Dates: start: 20050704, end: 20050709
  34. NORVASC [Suspect]
     Active Substance: AMLODIPINE BESYLATE
     Indication: Cardiovascular disorder
  35. CITRIC ACID MONOHYDRATE\POTASSIUM BICARBONATE\POTASSIUM CITRATE [Suspect]
     Active Substance: CITRIC ACID MONOHYDRATE\POTASSIUM BICARBONATE\POTASSIUM CITRATE
     Indication: Hypokalaemia
     Dosage: 1 DF, QD
     Route: 048
     Dates: start: 20050704, end: 20050713
  36. FUROSEMIDE [Suspect]
     Active Substance: FUROSEMIDE
     Indication: Hypertension
     Dosage: 40 MG, QD
     Route: 048
     Dates: start: 20050707
  37. OXAZEPAM [Suspect]
     Active Substance: OXAZEPAM
     Indication: Sedation
     Dosage: UNK
     Route: 048
     Dates: start: 20050708, end: 20050708
  38. DIGITOXIN [Suspect]
     Active Substance: DIGITOXIN
     Indication: Coronary artery disease
     Dosage: DAILY DOSE: 0.1 MG MILLIGRAM(S) EVERY DAY
     Route: 048
     Dates: start: 20050708
  39. ISOPTIN [Suspect]
     Active Substance: VERAPAMIL HYDROCHLORIDE
     Indication: Atrial fibrillation
     Dosage: UNK, 80 TO 160 MG/DAY
     Route: 048
     Dates: start: 20050709
  40. ISOPTIN [Suspect]
     Active Substance: VERAPAMIL HYDROCHLORIDE
     Dosage: 80 MG, QD, DOSAGE REGIMEN: 0-0-0-1, 1-1-0-0
     Route: 065
     Dates: start: 20050709
  41. VERAPAMIL [Suspect]
     Active Substance: VERAPAMIL HYDROCHLORIDE
     Indication: Atrial fibrillation
     Dosage: UNK, 80 TO 240 MG/DAY
     Route: 048
     Dates: start: 20050718
  42. MARCUMAR [Suspect]
     Active Substance: PHENPROCOUMON
     Indication: Atrial fibrillation
     Dosage: ACCORDING INR
     Route: 048
     Dates: start: 20050710
  43. CALCIUM [Suspect]
     Active Substance: CALCIUM
     Indication: Osteoporosis
     Dosage: 500 MG, BID
     Route: 048
     Dates: start: 20050715, end: 20050718
  44. PREDNISOLONE [Suspect]
     Active Substance: PREDNISOLONE
     Indication: Chronic obstructive pulmonary disease
     Dosage: 15 MG, QD, DOSAGE REGIMEN: 1-0-0, 100 MG 1-0-0
     Route: 048
     Dates: start: 20050716, end: 20050718
  45. PREDNISOLONE [Suspect]
     Active Substance: PREDNISOLONE
     Dosage: 100 MG, QD
     Route: 048
     Dates: start: 20050721, end: 20050721
  46. PREDNISOLONE [Suspect]
     Active Substance: PREDNISOLONE
     Dosage: 15 MG, QD
     Route: 065
     Dates: start: 20050721, end: 20050721
  47. CHOLECALCIFEROL [Suspect]
     Active Substance: CHOLECALCIFEROL
     Indication: Osteoporosis
     Dosage: 1000 IU, QD
     Route: 048
     Dates: start: 20050717, end: 20050717
  48. CHOLECALCIFEROL [Suspect]
     Active Substance: CHOLECALCIFEROL
     Dosage: 1000 IU, QD, DOSE: 1000 IE. DOSAGE REGIMEN: 1-0-0
     Route: 048
     Dates: start: 20050718, end: 20050718
  49. FLUTICASONE PROPIONATE\SALMETEROL XINAFOATE [Suspect]
     Active Substance: FLUTICASONE PROPIONATE\SALMETEROL XINAFOATE
     Indication: Chronic obstructive pulmonary disease
     Dosage: 1 DF, BID
     Dates: start: 20050718
  50. FLUTICASONE PROPIONATE\SALMETEROL XINAFOATE [Suspect]
     Active Substance: FLUTICASONE PROPIONATE\SALMETEROL XINAFOATE
     Dosage: UNK
  51. THEOPHYLLINE ANHYDROUS [Suspect]
     Active Substance: THEOPHYLLINE ANHYDROUS
     Indication: Chronic obstructive pulmonary disease
     Dosage: 200 MG, QD, ROUTE: INTRAVENOUS. DOSAGE REGIMEN: 3-0-0, 1-0-0
     Route: 042
     Dates: start: 20050627, end: 20050630
  52. THEOPHYLLINE ANHYDROUS [Suspect]
     Active Substance: THEOPHYLLINE ANHYDROUS
     Dosage: 200 MG, QD
     Route: 042
     Dates: start: 20050718, end: 20050718
  53. THEOPHYLLINE ANHYDROUS [Suspect]
     Active Substance: THEOPHYLLINE ANHYDROUS
     Dosage: 600 MG, QD, ROUTE: ORAL, DOSAGE REGIMEN:1-0-0
     Route: 048
     Dates: start: 20050704, end: 20050709
  54. ALENDRONATE SODIUM [Suspect]
     Active Substance: ALENDRONATE SODIUM
     Indication: Osteoporosis
     Dosage: 1 DF, BID
     Route: 048
     Dates: start: 20050719
  55. ALENDRONATE SODIUM [Suspect]
     Active Substance: ALENDRONATE SODIUM
     Dosage: 2 DOSAGE FORM, QD, DOSAGE REGIMEN: 1-0-1
     Route: 065
     Dates: start: 20050718
  56. PREDNISONE [Suspect]
     Active Substance: PREDNISONE
     Indication: Product used for unknown indication
     Dosage: 100 MG, QD
     Route: 065
  57. PREDNISOLONE [Suspect]
     Active Substance: PREDNISOLONE
     Indication: Chronic obstructive pulmonary disease
     Dosage: 280 MG, QD, DOSAGE REGIMEN: 50 MG 0-0, 280 MG-0-0, 20 MG-0-0, 5 MG 1-2-3.
     Route: 065
     Dates: start: 20050630, end: 20050705
  58. PREDNISOLONE [Suspect]
     Active Substance: PREDNISOLONE
     Dosage: 80 MG, QD
     Route: 065
     Dates: start: 20050707, end: 20050715
  59. PREDNISOLONE [Suspect]
     Active Substance: PREDNISOLONE
     Dosage: 5 MG
     Route: 065
     Dates: start: 20050719
  60. VERAPAMIL HYDROCHLORIDE [Suspect]
     Active Substance: VERAPAMIL HYDROCHLORIDE
     Indication: Atrial fibrillation
     Dosage: 240 MG, QD, DOSAGE REGIMEN: 1-0-0-0, 1-1-0-1
     Route: 065
     Dates: start: 20050718
  61. OMEPRAZOLE [Suspect]
     Active Substance: OMEPRAZOLE
     Indication: Prophylaxis
     Dosage: 20 MG, QD
     Route: 065
     Dates: start: 20050719
  62. CLORAZEPATE DIPOTASSIUM [Concomitant]
     Active Substance: CLORAZEPATE DIPOTASSIUM
     Indication: Sedation
     Dosage: 25 MG/DAY
     Route: 048
     Dates: start: 20050627, end: 20050702
  63. CLORAZEPATE DIPOTASSIUM [Concomitant]
     Active Substance: CLORAZEPATE DIPOTASSIUM
     Dosage: UNK, (25 MG/DAY)
     Route: 048
     Dates: start: 20050705, end: 20050705
  64. CLORAZEPATE DIPOTASSIUM [Concomitant]
     Active Substance: CLORAZEPATE DIPOTASSIUM
     Dosage: 200 MG, QD
     Route: 065
  65. DELIX [Concomitant]
     Indication: Coronary artery disease
     Dosage: 1 DF, QD
     Route: 048
     Dates: start: 20050630, end: 20050702
  66. DELIX [Concomitant]
     Indication: Cardiovascular disorder
     Dosage: UNK, DOSAGE REGIMEN: 1-0-0
     Route: 065
     Dates: start: 20050630, end: 20050702
  67. DELIX [Concomitant]
     Dosage: UNK
     Route: 065
  68. MOXIFLOXACIN HYDROCHLORIDE [Concomitant]
     Active Substance: MOXIFLOXACIN HYDROCHLORIDE
     Indication: Infective exacerbation of chronic obstructive airways disease
     Dosage: 400 MG, QD
     Route: 048
     Dates: start: 20050627, end: 20050703
  69. CLONIDINE [Concomitant]
     Active Substance: CLONIDINE
     Indication: Alcohol withdrawal syndrome
     Dosage: 1.5 G, QD
     Route: 042
     Dates: start: 20050628, end: 20050630
  70. CLONIDINE [Concomitant]
     Active Substance: CLONIDINE
     Dosage: 1.5 G, QD
     Route: 042
     Dates: start: 20050703, end: 20050704
  71. CLOMETHIAZOLE [Concomitant]
     Active Substance: CLOMETHIAZOLE
     Indication: Alcohol withdrawal syndrome
     Dosage: 2 DF, TID
     Route: 048
     Dates: start: 20050630, end: 20050703
  72. HALOPERIDOL [Concomitant]
     Active Substance: HALOPERIDOL
     Indication: Sedation
     Dosage: 10 DRP, QD, (DRUG NAME: HALOPERIDOL TROPFEN. DOSAGE REGIMEN: 10-0-0)
     Route: 048
     Dates: start: 20050629, end: 20050630
  73. HALOPERIDOL [Concomitant]
     Active Substance: HALOPERIDOL
     Dosage: 10 DRP, QD
     Route: 048
     Dates: start: 20050730, end: 20050730
  74. HALOPERIDOL [Concomitant]
     Active Substance: HALOPERIDOL
     Dosage: 10 DRP, QD, (10 GTT, QD)
     Route: 065
     Dates: start: 20050703
  75. RINGERS SOLUTION [Concomitant]
     Active Substance: CALCIUM CHLORIDE\POTASSIUM CHLORIDE\SODIUM CHLORIDE
     Indication: Hypovolaemia
     Dosage: 1000 ML, QD
     Route: 042
     Dates: start: 20050627, end: 20050703
  76. NITROGLYCERIN [Concomitant]
     Active Substance: NITROGLYCERIN
     Indication: Hypertension
     Dosage: 50 MG, QD
     Route: 042
     Dates: start: 20050702, end: 20050702
  77. FRUCTOSE\INSULIN BEEF [Concomitant]
     Active Substance: FRUCTOSE\INSULIN BEEF
     Indication: Blood glucose abnormal
     Dosage: UNKNOWN
     Route: 058
     Dates: start: 20050703, end: 20050703
  78. RINGERLOESUNG [Concomitant]
     Indication: Unevaluable event
     Dosage: 1000 ML, DRUG NAME: RINGER LSG. DOSAGE REGIMEN: 1-0-0
     Route: 065
     Dates: start: 20050627, end: 20050703

REACTIONS (13)
  - Pyrexia [Fatal]
  - Stevens-Johnson syndrome [Recovered/Resolved]
  - Toxic epidermal necrolysis [Recovered/Resolved]
  - Pruritus [Unknown]
  - Blister [Unknown]
  - Nikolsky^s sign [Unknown]
  - Nikolsky^s sign [Recovered/Resolved with Sequelae]
  - Pyrexia [Recovered/Resolved with Sequelae]
  - Oral mucosa erosion [Recovered/Resolved with Sequelae]
  - Lip erosion [Recovered/Resolved with Sequelae]
  - Blister [Recovered/Resolved with Sequelae]
  - Rash [Recovered/Resolved with Sequelae]
  - Pruritus [Recovered/Resolved with Sequelae]

NARRATIVE: CASE EVENT DATE: 20050721
